FAERS Safety Report 9373493 (Version 1)
Quarter: 2013Q2

REPORT INFORMATION
  Report Type: Other
  Country: GB (occurrence: GB)
  Receive Date: 20130627
  Receipt Date: 20130627
  Transmission Date: 20140414
  Serious: Yes (Other)
  Sender: FDA-Public Use
  Company Number: GB-WATSON-2013-11449

PATIENT
  Age: 7 Year
  Sex: Male

DRUGS (3)
  1. PREDNISOLONE (UNKNOWN) [Suspect]
     Indication: ASTHMA
     Dosage: 6 DF, DAILY
     Route: 048
     Dates: start: 20120904
  2. SINGULAIR [Concomitant]
     Indication: PRODUCT USED FOR UNKNOWN INDICATION
     Route: 065
  3. INHALERIN [Concomitant]
     Indication: PRODUCT USED FOR UNKNOWN INDICATION
     Dosage: UNK
     Route: 065

REACTIONS (3)
  - Personality change [Unknown]
  - Irritability [Unknown]
  - Abdominal discomfort [Recovering/Resolving]
